FAERS Safety Report 11707576 (Version 1)
Quarter: 2015Q4

REPORT INFORMATION
  Report Type: Spontaneous
  Country: US (occurrence: US)
  Receive Date: 20151104
  Receipt Date: 20151104
  Transmission Date: 20160304
  Serious: No
  Sender: FDA-Public Use
  Company Number: US-ELI_LILLY_AND_COMPANY-US201102006391

PATIENT
  Age: 67 Year
  Sex: Female

DRUGS (2)
  1. FORTEO [Suspect]
     Active Substance: TERIPARATIDE
     Indication: OSTEOPOROSIS
     Dosage: 20 UG, DAILY (1/D)
     Route: 065
     Dates: start: 20110131
  2. FORTEO [Suspect]
     Active Substance: TERIPARATIDE
     Dosage: 20 UG, QD

REACTIONS (9)
  - Cataract operation [Unknown]
  - Sticky skin [Unknown]
  - Constipation [Unknown]
  - Muscular weakness [Unknown]
  - Weight decreased [Unknown]
  - Asthenia [Unknown]
  - Parosmia [Unknown]
  - Dysgeusia [Unknown]
  - Night sweats [Unknown]

NARRATIVE: CASE EVENT DATE: 20110214
